FAERS Safety Report 16718975 (Version 2)
Quarter: 2019Q4

REPORT INFORMATION
  Report Type: Report from Study
  Country: None (occurrence: US)
  Receive Date: 20190820
  Receipt Date: 20191107
  Transmission Date: 20200122
  Serious: Yes (Other)
  Sender: FDA-Public Use
  Company Number: US-ABBVIE-19K-163-2889806-00

PATIENT
  Sex: Female

DRUGS (1)
  1. HUMIRA [Suspect]
     Active Substance: ADALIMUMAB
     Indication: CROHN^S DISEASE
     Route: 058

REACTIONS (15)
  - Chest pain [Unknown]
  - Urinary tract infection [Recovering/Resolving]
  - Limb injury [Not Recovered/Not Resolved]
  - Blood creatine decreased [Not Recovered/Not Resolved]
  - Vulvovaginal mycotic infection [Recovering/Resolving]
  - Bone marrow disorder [Unknown]
  - Nasopharyngitis [Unknown]
  - Adhesion [Unknown]
  - Wound secretion [Not Recovered/Not Resolved]
  - Haemoglobin decreased [Unknown]
  - Diabetes mellitus [Recovering/Resolving]
  - Blood sodium decreased [Unknown]
  - Dyspnoea [Not Recovered/Not Resolved]
  - Blood creatinine decreased [Unknown]
  - Asthenia [Unknown]
